FAERS Safety Report 9539427 (Version 3)
Quarter: 2014Q1

REPORT INFORMATION
  Report Type: Report from Study
  Country: CA (occurrence: CA)
  Receive Date: 20130920
  Receipt Date: 20140131
  Transmission Date: 20141002
  Serious: No
  Sender: FDA-Public Use
  Company Number: CA-UCBSA-097620

PATIENT
  Age: 69 Year
  Sex: Female
  Weight: 92.8 kg

DRUGS (7)
  1. CIMZIA [Suspect]
     Indication: RHEUMATOID ARTHRITIS
     Route: 058
     Dates: start: 20130502, end: 20130530
  2. CIMZIA [Suspect]
     Indication: RHEUMATOID ARTHRITIS
     Route: 058
     Dates: start: 20130613, end: 20130905
  3. METHOTREXATE [Concomitant]
     Indication: RHEUMATOID ARTHRITIS
     Route: 058
     Dates: start: 20120414
  4. PLAQUENIL [Concomitant]
     Indication: RHEUMATOID ARTHRITIS
     Route: 048
     Dates: start: 20120214
  5. HCTZ [Concomitant]
     Indication: HYPERTENSION
     Route: 048
  6. ZOMATE [Concomitant]
     Indication: MIGRAINE
     Route: 048
  7. CELEBREX [Concomitant]
     Indication: RHEUMATOID ARTHRITIS
     Dosage: 200 MG, TWICE DAILY, AS NECESSARY
     Route: 048

REACTIONS (2)
  - Rash [Not Recovered/Not Resolved]
  - Oropharyngeal pain [Not Recovered/Not Resolved]
